FAERS Safety Report 5348004-9 (Version None)
Quarter: 2007Q2

REPORT INFORMATION
  Report Type: 
  Country: None (occurrence: None)
  Receive Date: 20070606
  Receipt Date: 20070605
  Transmission Date: 20071010
  Serious: Yes (Death, Hospitalization, Other)
  Sender: FDA-Public Use
  Company Number: TW-BRISTOL-MYERS SQUIBB COMPANY-13802251

PATIENT
  Age: 28 Year
  Sex: Female

DRUGS (3)
  1. METHOTREXATE SODIUM [Suspect]
     Route: 037
  2. HYDROCORTISONE [Suspect]
     Route: 037
  3. CYTARABINE [Suspect]
     Route: 037

REACTIONS (3)
  - INFECTION [None]
  - SEPTIC SHOCK [None]
  - SPINAL CORD DISORDER [None]
